FAERS Safety Report 20481761 (Version 1)
Quarter: 2022Q1

REPORT INFORMATION
  Report Type: Spontaneous
  Country: US (occurrence: None)
  Receive Date: 20220216
  Receipt Date: 20220216
  Transmission Date: 20220424
  Serious: Yes (Hospitalization)
  Sender: FDA-Public Use
  Company Number: None

PATIENT
  Age: 52 Year
  Sex: Female
  Weight: 81 kg

DRUGS (2)
  1. LEXAPRO [Suspect]
     Active Substance: ESCITALOPRAM OXALATE
     Indication: Anxiety
     Dosage: OTHER QUANTITY : 1 TABLET(S);?FREQUENCY : AT BEDTIME;?
     Route: 048
     Dates: start: 20211101, end: 20211106
  2. CELEXA [Suspect]
     Active Substance: CITALOPRAM HYDROBROMIDE

REACTIONS (12)
  - Headache [None]
  - Peripheral vascular disorder [None]
  - Coordination abnormal [None]
  - Aphasia [None]
  - Euphoric mood [None]
  - Aggression [None]
  - Amnesia [None]
  - Suicidal ideation [None]
  - Suicide attempt [None]
  - Impulse-control disorder [None]
  - Amnesia [None]
  - Emotional poverty [None]

NARRATIVE: CASE EVENT DATE: 20211106
